FAERS Safety Report 8063482-2 (Version None)
Quarter: 2012Q1

REPORT INFORMATION
  Report Type: 
  Country: None (occurrence: None)
  Receive Date: 20120123
  Receipt Date: 20120119
  Transmission Date: 20120608
  Serious: Yes (Death, Hospitalization, Other)
  Sender: FDA-Public Use
  Company Number: AU-SANOFI-AVENTIS-2011SA082570

PATIENT
  Age: 51 Year
  Sex: Female
  Weight: 53.4 kg

DRUGS (5)
  1. BLINDED THERAPY [Suspect]
     Dosage: 21 DAY CYCLE
     Route: 042
     Dates: start: 20111117, end: 20111117
  2. DOCETAXEL [Suspect]
     Dosage: EVERY 21 DAYS
     Route: 041
     Dates: start: 20111117, end: 20111117
  3. ACETAMINOPHEN [Concomitant]
     Dates: end: 20111126
  4. OXYCODONE HCL [Concomitant]
  5. MS CONTIN [Concomitant]

REACTIONS (2)
  - ENTEROCOLITIS [None]
  - OVERDOSE [None]
